FAERS Safety Report 11323411 (Version 1)
Quarter: 2015Q3

REPORT INFORMATION
  Report Type: Spontaneous
  Country: US (occurrence: None)
  Receive Date: 20150729
  Receipt Date: 20150729
  Transmission Date: 20151125
  Serious: No
  Sender: FDA-Public Use
  Company Number: None

PATIENT
  Age: 54 Year
  Sex: Male
  Weight: 99.79 kg

DRUGS (2)
  1. OMEPROLOZE [Concomitant]
  2. AMLODIPINE [Suspect]
     Active Substance: AMLODIPINE BESYLATE
     Dosage: 90?ONCE DAILY?TAKEN BY MOUTH
     Route: 048

REACTIONS (5)
  - Muscle spasms [None]
  - Asthenia [None]
  - Fatigue [None]
  - Swelling [None]
  - Malaise [None]

NARRATIVE: CASE EVENT DATE: 20150718
